FAERS Safety Report 22271432 (Version 3)
Quarter: 2023Q4

REPORT INFORMATION
  Report Type: Report from Study
  Country: CO (occurrence: CO)
  Receive Date: 20230501
  Receipt Date: 20231026
  Transmission Date: 20240109
  Serious: Yes (Hospitalization)
  Sender: FDA-Public Use
  Company Number: CO-BIOGEN-2023BI01202127

PATIENT
  Sex: Female
  Weight: 50 kg

DRUGS (2)
  1. TYSABRI [Suspect]
     Active Substance: NATALIZUMAB
     Indication: Multiple sclerosis
     Route: 050
     Dates: start: 20150915, end: 202302
  2. TYSABRI [Suspect]
     Active Substance: NATALIZUMAB
     Route: 050
     Dates: start: 202304

REACTIONS (12)
  - Syncope [Recovered/Resolved]
  - Asthenia [Recovered/Resolved]
  - Vision blurred [Recovered/Resolved]
  - Gait inability [Recovered/Resolved]
  - Neuralgia [Not Recovered/Not Resolved]
  - Eye movement disorder [Recovered/Resolved]
  - Multiple sclerosis relapse [Unknown]
  - Gastritis [Unknown]
  - Reading disorder [Recovered/Resolved]
  - Malaise [Not Recovered/Not Resolved]
  - Speech disorder [Not Recovered/Not Resolved]
  - Dizziness [Recovered/Resolved]

NARRATIVE: CASE EVENT DATE: 20230101
